FAERS Safety Report 24743122 (Version 1)
Quarter: 2024Q4

REPORT INFORMATION
  Report Type: Spontaneous
  Country: US (occurrence: US)
  Receive Date: 20241217
  Receipt Date: 20241217
  Transmission Date: 20250115
  Serious: No
  Sender: FERRING
  Company Number: US-FERRINGPH-2024FE05513

PATIENT
  Sex: Female

DRUGS (1)
  1. REBYOTA [Suspect]
     Active Substance: DONOR HUMAN STOOL
     Indication: Product used for unknown indication
     Dosage: UNK
     Route: 054
     Dates: start: 20240919, end: 20240919

REACTIONS (4)
  - Incorrect dose administered [Unknown]
  - Product use complaint [Unknown]
  - Product deposit [Unknown]
  - Instillation site discharge [Unknown]
